FAERS Safety Report 7304956-9 (Version None)
Quarter: 2011Q1

REPORT INFORMATION
  Report Type: 
  Country: None (occurrence: None)
  Receive Date: 20110222
  Receipt Date: 20110217
  Transmission Date: 20110831
  Serious: Yes (Life-Threatening, Hospitalization)
  Sender: FDA-Public Use
  Company Number: FR-ASTRAZENECA-2009SE29381

PATIENT
  Age: 28560 Day
  Sex: Male
  Weight: 65 kg

DRUGS (4)
  1. AMLOR [Concomitant]
     Indication: HYPERTENSION
     Route: 048
  2. ZD6474 CODE NOT BROKEN [Suspect]
     Indication: PROSTATE CANCER METASTATIC
     Dosage: DAILY
     Route: 048
     Dates: start: 20091019, end: 20091110
  3. CASODEX [Suspect]
     Indication: PROSTATE CANCER METASTATIC
     Route: 048
     Dates: start: 20091019, end: 20091110
  4. ATACAND [Concomitant]
     Indication: HYPERTENSION
     Route: 048

REACTIONS (1)
  - TORSADE DE POINTES [None]
